FAERS Safety Report 20141156 (Version 1)
Quarter: 2021Q4

REPORT INFORMATION
  Report Type: Spontaneous
  Country: DE (occurrence: DE)
  Receive Date: 20211202
  Receipt Date: 20211202
  Transmission Date: 20220303
  Serious: Yes (Other)
  Sender: FDA-Public Use
  Company Number: None

PATIENT
  Sex: Female

DRUGS (1)
  1. ARIPIPRAZOLE [Suspect]
     Active Substance: ARIPIPRAZOLE
     Indication: Delusion
     Dosage: 30 MILLIGRAM

REACTIONS (20)
  - Self-destructive behaviour [Recovered/Resolved]
  - Affective disorder [Recovered/Resolved]
  - Mental impairment [Not Recovered/Not Resolved]
  - Suicidal ideation [Recovered/Resolved]
  - Asthenia [Not Recovered/Not Resolved]
  - Gait disturbance [Not Recovered/Not Resolved]
  - Bradyphrenia [Not Recovered/Not Resolved]
  - Euphoric mood [Recovered/Resolved]
  - Muscle spasms [Not Recovered/Not Resolved]
  - Mobility decreased [Not Recovered/Not Resolved]
  - Myalgia [Not Recovered/Not Resolved]
  - Compulsive shopping [Recovered/Resolved]
  - Abdominal discomfort [Not Recovered/Not Resolved]
  - Aggression [Recovered/Resolved]
  - Headache [Not Recovered/Not Resolved]
  - Libido increased [Recovered/Resolved]
  - Impulsive behaviour [Recovered/Resolved]
  - Fatigue [Not Recovered/Not Resolved]
  - Depression [Not Recovered/Not Resolved]
  - Weight increased [Not Recovered/Not Resolved]
